FAERS Safety Report 18931904 (Version 1)
Quarter: 2021Q1

REPORT INFORMATION
  Report Type: Report from Study
  Country: None (occurrence: CO)
  Receive Date: 20210224
  Receipt Date: 20210224
  Transmission Date: 20210420
  Serious: Yes (Other)
  Sender: FDA-Public Use
  Company Number: CO-ABBVIE-20K-036-3632767-00

PATIENT
  Age: 53 Year
  Sex: Male
  Weight: 93 kg

DRUGS (3)
  1. HUMIRA [Suspect]
     Active Substance: ADALIMUMAB
     Route: 058
     Dates: end: 20210113
  2. HUMIRA [Suspect]
     Active Substance: ADALIMUMAB
     Indication: PSORIASIS
     Route: 058
     Dates: start: 20160225
  3. HUMIRA [Suspect]
     Active Substance: ADALIMUMAB
     Indication: PSORIASIS
     Route: 058
     Dates: end: 20201005

REACTIONS (9)
  - Dry throat [Recovering/Resolving]
  - Asthenia [Recovering/Resolving]
  - Hypersomnia [Recovering/Resolving]
  - Insomnia [Recovering/Resolving]
  - COVID-19 pneumonia [Recovered/Resolved]
  - Apnoea [Recovering/Resolving]
  - Snoring [Recovering/Resolving]
  - Malaise [Recovered/Resolved]
  - Lung disorder [Recovering/Resolving]

NARRATIVE: CASE EVENT DATE: 2020
